FAERS Safety Report 9187095 (Version 2)
Quarter: 2013Q3

REPORT INFORMATION
  Report Type: Spontaneous
  Country: FR (occurrence: FR)
  Receive Date: 20130325
  Receipt Date: 20130731
  Transmission Date: 20140515
  Serious: Yes (Other)
  Sender: FDA-Public Use
  Company Number: FR-NOVOPROD-373594

PATIENT
  Age: 74 Year
  Sex: Female

DRUGS (11)
  1. VICTOZA [Suspect]
     Indication: DIABETES MELLITUS
     Dosage: UNKNOWN
     Route: 058
     Dates: start: 201211, end: 20121224
  2. VICTOZA [Suspect]
     Dosage: UNKNOWN
     Route: 058
     Dates: start: 20121231, end: 20130107
  3. VICTOZA [Suspect]
     Dosage: UNKNOWN
     Route: 058
     Dates: start: 20130119
  4. CELECTOL [Concomitant]
  5. ESIDREX [Concomitant]
     Dosage: UNKNOWN
     Route: 065
  6. ALDACTONE                          /00006201/ [Concomitant]
  7. TRIATEC                            /00116401/ [Concomitant]
  8. KALEORID [Concomitant]
  9. KARDEGIC [Concomitant]
  10. CRESTOR [Concomitant]
  11. LANTUS [Concomitant]

REACTIONS (3)
  - Febrile convulsion [Recovered/Resolved]
  - Febrile convulsion [Recovered/Resolved]
  - Febrile convulsion [Not Recovered/Not Resolved]
